FAERS Safety Report 24219939 (Version 1)
Quarter: 2024Q3

REPORT INFORMATION
  Report Type: Spontaneous
  Country: IN (occurrence: IN)
  Receive Date: 20240817
  Receipt Date: 20240817
  Transmission Date: 20241017
  Serious: Yes (Death, Other)
  Sender: AMGEN
  Company Number: IN-AMGEN-INDSP2024160354

PATIENT
  Age: 17 Year

DRUGS (2)
  1. BLINCYTO [Suspect]
     Active Substance: BLINATUMOMAB
     Indication: B-cell type acute leukaemia
     Dosage: 5 MICROGRAM/SQ. METER, QD (28-DAY CONTINUOUS INTRAVENOUS INFUSION)
     Route: 042
  2. INOTUZUMAB OZOGAMICIN [Suspect]
     Active Substance: INOTUZUMAB OZOGAMICIN
     Indication: B-cell type acute leukaemia
     Dosage: 1.8 MILLIGRAM/SQ. METER (PER COURSE WAS ADMINISTERED OVER 1 HOUR ON DAYS 1, 8, 15 OF 28-DAY CYCLE)
     Route: 042

REACTIONS (3)
  - Acute respiratory distress syndrome [Fatal]
  - Capillary leak syndrome [Unknown]
  - Transplantation complication [Fatal]
